FAERS Safety Report 10581468 (Version 1)
Quarter: 2014Q4

REPORT INFORMATION
  Report Type: Spontaneous
  Country: US (occurrence: None)
  Receive Date: 20141112
  Receipt Date: 20141112
  Transmission Date: 20150529
  Serious: Yes (Other)
  Sender: FDA-Public Use
  Company Number: None

PATIENT
  Age: 46 Year
  Sex: Male
  Weight: 77.11 kg

DRUGS (1)
  1. APRISO [Suspect]
     Active Substance: MESALAMINE
     Indication: ABDOMINAL PAIN LOWER
     Dosage: 4PILLS
     Route: 048
     Dates: start: 20141109, end: 20141109

REACTIONS (9)
  - Nausea [None]
  - Hypersomnia [None]
  - Pyrexia [None]
  - Fatigue [None]
  - Condition aggravated [None]
  - Dehydration [None]
  - Abdominal pain lower [None]
  - Headache [None]
  - Abdominal pain upper [None]

NARRATIVE: CASE EVENT DATE: 20141110
